FAERS Safety Report 5652155-9 (Version None)
Quarter: 2008Q1

REPORT INFORMATION
  Report Type: 
  Country: None (occurrence: None)
  Receive Date: 20080304
  Receipt Date: 20080219
  Transmission Date: 20080703
  Serious: Yes (Congenital Anomaly)
  Sender: FDA-Public Use
  Company Number: E2090-00392-SPO-JP

PATIENT
  Sex: Female
  Weight: 3.45 kg

DRUGS (1)
  1. ZONISAMIDE [Suspect]
     Indication: DRUG EXPOSURE DURING PREGNANCY
     Dosage: 300 MG, 1 IN 1 D, INTRA-UTERINE
     Route: 015

REACTIONS (8)
  - CAESAREAN SECTION [None]
  - CONVULSION NEONATAL [None]
  - DRUG EXPOSURE DURING PREGNANCY [None]
  - FOETAL DISTRESS SYNDROME [None]
  - FOETAL MOVEMENTS DECREASED [None]
  - MOEBIUS II SYNDROME [None]
  - NEONATAL HYPOTENSION [None]
  - NEONATAL RESPIRATORY DISTRESS SYNDROME [None]
